FAERS Safety Report 8837256 (Version 1)
Quarter: 2012Q4

REPORT INFORMATION
  Report Type: Spontaneous
  Country: US (occurrence: None)
  Receive Date: 20121011
  Receipt Date: 20121011
  Transmission Date: 20130627
  Serious: Yes (Other)
  Sender: FDA-Public Use
  Company Number: None

PATIENT
  Age: 18 Year
  Sex: Male

DRUGS (3)
  1. FELBAMATE [Suspect]
     Indication: EPILEPSY
     Dosage: 600mg 2 tabs twice daily PO
     Route: 048
     Dates: start: 2009
  2. FELBAMATE [Suspect]
     Dosage: 600mg 2 tabs twice daily PO
     Route: 048
     Dates: start: 2009
  3. FELBAMATE [Suspect]
     Dosage: 600mg 2 tabs twice daily PO
     Route: 048
     Dates: start: 2009

REACTIONS (2)
  - Convulsion [None]
  - Product substitution issue [None]
